FAERS Safety Report 11144298 (Version 1)
Quarter: 2015Q2

REPORT INFORMATION
  Report Type: Spontaneous
  Country: DE (occurrence: DE)
  Receive Date: 20150526
  Receipt Date: 20150526
  Transmission Date: 20150821
  Serious: Yes (Other)
  Sender: FDA-Public Use
  Company Number: DE-ASTELLAS-2015US016464

PATIENT
  Sex: Female
  Weight: 65 kg

DRUGS (4)
  1. BETMIGA [Suspect]
     Active Substance: MIRABEGRON
     Indication: URGE INCONTINENCE
     Dosage: UNK, UNKNOWN FREQ.
     Route: 048
     Dates: start: 201410, end: 201503
  2. ISOPTIN [Concomitant]
     Active Substance: VERAPAMIL HYDROCHLORIDE
     Indication: PRODUCT USED FOR UNKNOWN INDICATION
     Dosage: UNK UNK, UNKNOWN FREQ.
     Route: 065
  3. SIMVASTATIN. [Concomitant]
     Active Substance: SIMVASTATIN
     Indication: PRODUCT USED FOR UNKNOWN INDICATION
     Dosage: UNK UNK, UNKNOWN FREQ.
     Route: 065
  4. MAGNESIUM [Concomitant]
     Active Substance: MAGNESIUM
     Indication: PRODUCT USED FOR UNKNOWN INDICATION
     Dosage: UNK UNK, UNKNOWN FREQ.
     Route: 065

REACTIONS (1)
  - Alopecia [Recovered/Resolved]

NARRATIVE: CASE EVENT DATE: 201501
